FAERS Safety Report 22296133 (Version 1)
Quarter: 2023Q2

REPORT INFORMATION
  Report Type: Report from Study
  Country: GB (occurrence: GB)
  Receive Date: 20230508
  Receipt Date: 20230508
  Transmission Date: 20230722
  Serious: Yes (Hospitalization)
  Sender: FDA-Public Use
  Company Number: GB-ROCHE-3003785

PATIENT
  Age: 66 Year
  Sex: Female

DRUGS (24)
  1. CAPECITABINE [Suspect]
     Active Substance: CAPECITABINE
     Indication: Breast cancer metastatic
     Dosage: 1800 MILLIGRAM, BID
     Route: 048
     Dates: start: 20170905, end: 20171219
  2. CAPECITABINE [Suspect]
     Active Substance: CAPECITABINE
     Dosage: 1650 MILLIGRAM, BID
     Route: 048
     Dates: start: 20180131, end: 20201104
  3. CAPECITABINE [Suspect]
     Active Substance: CAPECITABINE
     Dosage: 1500 MILLIGRAM, BID(START DATE: 09-DEC-2020)
     Route: 048
     Dates: end: 20210427
  4. DOCETAXEL [Suspect]
     Active Substance: DOCETAXEL
     Indication: Breast cancer metastatic
     Dosage: 130 MILLIGRAM, Q3W
     Route: 042
     Dates: start: 20160524, end: 20160524
  5. DOCETAXEL [Suspect]
     Active Substance: DOCETAXEL
     Dosage: 75 MILLIGRAM, Q3W
     Route: 042
     Dates: start: 20160706, end: 20161026
  6. DOCETAXEL [Suspect]
     Active Substance: DOCETAXEL
     Dosage: 100 MILLIGRAM, Q3W
     Route: 042
     Dates: start: 20160615, end: 20160615
  7. LETROZOLE [Suspect]
     Active Substance: LETROZOLE
     Indication: Breast cancer metastatic
     Dosage: 1 DOSAGE FORM, QD(START DATE: 12-OCT-2021)
     Route: 048
  8. TRASTUZUMAB [Suspect]
     Active Substance: TRASTUZUMAB
     Indication: Breast cancer metastatic
     Dosage: 525 MILLIGRAM, Q3W(IV DRIP)
     Route: 042
     Dates: start: 20160524, end: 20160524
  9. TRASTUZUMAB [Suspect]
     Active Substance: TRASTUZUMAB
     Dosage: 399 MILLIGRAM, Q3W(IV DRIP)
     Route: 042
     Dates: start: 20160615, end: 20160914
  10. TRASTUZUMAB [Suspect]
     Active Substance: TRASTUZUMAB
     Dosage: 399 MILLIGRAM, Q3W(IV DRIP)
     Route: 042
     Dates: start: 20161026, end: 20161026
  11. TRASTUZUMAB [Suspect]
     Active Substance: TRASTUZUMAB
     Dosage: 378 MILLIGRAM, Q3W(IV DRIP)
     Route: 042
     Dates: start: 20161116, end: 20170412
  12. PERTUZUMAB [Suspect]
     Active Substance: PERTUZUMAB
     Indication: Breast cancer metastatic
     Dosage: 420 MILLIGRAM, Q3W
     Route: 042
     Dates: start: 20160615, end: 20160914
  13. PERTUZUMAB [Suspect]
     Active Substance: PERTUZUMAB
     Dosage: 420 MILLIGRAM, Q3W
     Route: 042
     Dates: start: 20161026, end: 20170503
  14. PERTUZUMAB [Suspect]
     Active Substance: PERTUZUMAB
     Dosage: 840 MILLIGRAM, Q3W
     Route: 042
     Dates: start: 20160523, end: 20160523
  15. TRASTUZUMAB DERUXTECAN [Suspect]
     Active Substance: TRASTUZUMAB DERUXTECAN
     Indication: Breast cancer metastatic
     Dosage: 5.4 MILLIGRAM/KILOGRAM, Q3W(START DATE: 09-AUG-2021)
     Route: 042
     Dates: end: 20211012
  16. ADO-TRASTUZUMAB EMTANSINE [Suspect]
     Active Substance: ADO-TRASTUZUMAB EMTANSINE
     Indication: Breast cancer metastatic
     Dosage: 3.6 MILLIGRAM/KILOGRAM, Q3W
     Route: 042
     Dates: start: 20170524, end: 20170816
  17. CALCIUM CARBONATE\CHOLECALCIFEROL [Concomitant]
     Active Substance: CALCIUM CARBONATE\CHOLECALCIFEROL
     Dosage: 10 MICROGRAM
     Route: 048
     Dates: start: 20130117
  18. SARS-CoV-2 vaccine [Concomitant]
     Indication: COVID-19
     Dosage: 0.3 MILLILITER,PRN(START DATE: 05-FEB-2021)
     Route: 030
     Dates: end: 20210205
  19. SARS-CoV-2 vaccine [Concomitant]
     Dosage: 0.3 MILLILITER, PRN,COVID VACCINE 2 DOSE
     Route: 030
  20. DENOSUMAB [Concomitant]
     Active Substance: DENOSUMAB
     Indication: Metastases to bone
     Dosage: 120 MILLIGRAM, Q3W
     Route: 042
     Dates: start: 20160523
  21. DEXAMETHASONE [Concomitant]
     Active Substance: DEXAMETHASONE
     Dosage: 4 MILLIGRAM, BID (START DATE: 12-OCT-2021)
     Route: 048
  22. DOMPERIDONE [Concomitant]
     Active Substance: DOMPERIDONE
     Indication: Nausea
     Dosage: 10 MILLIGRAM,PRN
     Route: 048
     Dates: start: 20160523
  23. LOPERAMIDE [Concomitant]
     Active Substance: LOPERAMIDE
     Indication: Diarrhoea
     Dosage: 2 MILLIGRAM,PRN
     Route: 048
     Dates: start: 20170905
  24. OMEPRAZOLE [Concomitant]
     Active Substance: OMEPRAZOLE
     Indication: Illness
     Dosage: 40 MILLIGRAM, QD (START DATE:12-OCT-2021)
     Route: 048

REACTIONS (2)
  - Neutrophil count decreased [Recovered/Resolved]
  - Urinary tract infection [Recovered/Resolved]

NARRATIVE: CASE EVENT DATE: 20201203
